FAERS Safety Report 6191495-4 (Version None)
Quarter: 2009Q2

REPORT INFORMATION
  Report Type: 
  Country: None (occurrence: None)
  Receive Date: 20090515
  Receipt Date: 20090511
  Transmission Date: 20091009
  Serious: Yes (Hospitalization)
  Sender: FDA-Public Use
  Company Number: CH-JNJFOC-20090502102

PATIENT
  Age: 26 Year
  Sex: Female

DRUGS (2)
  1. TAVANIC [Suspect]
     Indication: PNEUMONIA
     Route: 048
  2. TAZOBAC [Suspect]
     Indication: PNEUMONIA
     Route: 042

REACTIONS (2)
  - ANAEMIA HAEMOLYTIC AUTOIMMUNE [None]
  - BLOOD LACTATE DEHYDROGENASE INCREASED [None]
